FAERS Safety Report 4588498-X (Version None)
Quarter: 2005Q1

REPORT INFORMATION
  Report Type: 
  Country: None (occurrence: None)
  Receive Date: 20050216
  Receipt Date: 20050216
  Transmission Date: 20050727
  Serious: Yes (Hospitalization)
  Sender: FDA-Public Use
  Company Number: None

PATIENT
  Age: 66 Year
  Sex: Male
  Weight: 61.6892 kg

DRUGS (17)
  1. ETANERCEPT [Suspect]
     Indication: PSORIASIS
     Dosage: 50 MG TWICE A WEEK
     Dates: start: 20041005
  2. ALBUTEROL [Concomitant]
  3. AMITRIPTYLINE HCL [Concomitant]
  4. AMOXICILLIN [Concomitant]
  5. CALCIPOTRIENE [Concomitant]
  6. CALCITONIN-SALMON [Concomitant]
  7. CALCIUM / VITAMIN D [Concomitant]
  8. DM 10 / GUAIFENESN 100MG [Concomitant]
  9. FLUOCINONIDE [Concomitant]
  10. IPATROPIUM BROMIDE [Concomitant]
  11. LORATADINE [Concomitant]
  12. LORAZEPAM [Concomitant]
  13. MONTELUKAST NA [Concomitant]
  14. OMEPRAZOLE [Concomitant]
  15. PREDNISONE [Concomitant]
  16. QUININE SULFATE [Concomitant]
  17. SERTRALINE HCL [Concomitant]

REACTIONS (2)
  - DIZZINESS [None]
  - PNEUMONIA [None]
